FAERS Safety Report 15358076 (Version 2)
Quarter: 2018Q3

REPORT INFORMATION
  Report Type: Spontaneous
  Country: DE (occurrence: DE)
  Receive Date: 20180906
  Receipt Date: 20180913
  Transmission Date: 20181010
  Serious: Yes (Hospitalization, Other)
  Sender: FDA-Public Use
  Company Number: DE-SA-2018SA238031

PATIENT
  Sex: Female

DRUGS (1)
  1. AUBAGIO [Suspect]
     Active Substance: TERIFLUNOMIDE
     Dosage: 14 MG
     Route: 048
     Dates: start: 20180715, end: 20180806

REACTIONS (18)
  - Endoscopy abnormal [Unknown]
  - Pyrexia [Unknown]
  - Sepsis [Unknown]
  - Decreased appetite [Unknown]
  - Gastric cyst [Unknown]
  - Coeliac disease [Unknown]
  - Weight decreased [Unknown]
  - Gastroenteritis cryptosporidial [Recovered/Resolved]
  - Diarrhoea [Recovered/Resolved]
  - Dehydration [Unknown]
  - Dizziness [Unknown]
  - Peristalsis visible [Unknown]
  - Hydrocholecystis [Unknown]
  - Abdominal pain [Recovered/Resolved]
  - Thrombophlebitis [Unknown]
  - General physical health deterioration [Unknown]
  - Enterobacter test positive [Unknown]
  - Cholelithiasis [Unknown]
